FAERS Safety Report 6088110-7 (Version None)
Quarter: 2009Q1

REPORT INFORMATION
  Report Type: 
  Country: None (occurrence: None)
  Receive Date: 20090220
  Receipt Date: 20090213
  Transmission Date: 20090719
  Serious: Yes (Hospitalization)
  Sender: FDA-Public Use
  Company Number: 2009SP000384

PATIENT
  Age: 75 Year
  Sex: Male
  Weight: 79.2 kg

DRUGS (14)
  1. TEMOZOLOMIDE [Suspect]
     Indication: METASTATIC MALIGNANT MELANOMA
     Dosage: PO
     Route: 048
     Dates: end: 20081117
  2. ABT-888 (INVESTIGATIONAL DRUG) [Suspect]
     Indication: METASTATIC MALIGNANT MELANOMA
     Dosage: 40 MG; BID; PO
     Route: 048
     Dates: start: 20081111, end: 20081117
  3. ABT-888 (INVESTIGATIONAL DRUG) [Suspect]
     Indication: METASTATIC MALIGNANT MELANOMA
     Dosage: 40 MG; BID; PO
     Route: 048
     Dates: start: 20081216, end: 20081222
  4. MODURETIC 5-50 [Concomitant]
  5. GLUCOSAMINE [Concomitant]
  6. ERGOCALCIFEROL [Concomitant]
  7. SENNOSIDES [Concomitant]
  8. IBUPROFEN [Concomitant]
  9. CLINDAMYCIN PHOSPHATE [Concomitant]
  10. TRAMADOL HYDROCHLORIDE [Concomitant]
  11. PROCHLORPERAZINE EDISYLATE [Concomitant]
  12. MYLANTA [Concomitant]
  13. TRAMADOL HCL [Concomitant]
  14. ONDANSETRON [Concomitant]

REACTIONS (7)
  - BLOOD PRESSURE DIASTOLIC INCREASED [None]
  - CONSTIPATION [None]
  - DYSPEPSIA [None]
  - FATIGUE [None]
  - FEBRILE NEUTROPENIA [None]
  - PNEUMONIA [None]
  - WHITE BLOOD CELL COUNT DECREASED [None]
